FAERS Safety Report 11962364 (Version 1)
Quarter: 2016Q1

REPORT INFORMATION
  Report Type: Spontaneous
  Country: US (occurrence: US)
  Receive Date: 20160126
  Receipt Date: 20160126
  Transmission Date: 20160526
  Serious: No
  Sender: FDA-Public Use
  Company Number: US-DEXPHARM-20151180

PATIENT
  Age: 71 Year
  Sex: Male
  Weight: 89.8 kg

DRUGS (5)
  1. GLUCOSAMINE + CHONDROITIN [Concomitant]
     Dates: start: 1995
  2. ASPIRIN. [Concomitant]
     Active Substance: ASPIRIN
  3. MELATONIN [Concomitant]
     Active Substance: MELATONIN
     Dates: start: 201412
  4. TAMSULOSIN [Concomitant]
     Active Substance: TAMSULOSIN
     Dates: start: 2011
  5. OMEPRAZOLE DELAYED RELEASE [Suspect]
     Active Substance: OMEPRAZOLE
     Indication: GASTROOESOPHAGEAL REFLUX DISEASE
     Route: 048
     Dates: start: 2013

REACTIONS (1)
  - Weight increased [Not Recovered/Not Resolved]

NARRATIVE: CASE EVENT DATE: 2013
